FAERS Safety Report 7943706-X (Version None)
Quarter: 2011Q4

REPORT INFORMATION
  Report Type: 
  Country: None (occurrence: None)
  Receive Date: 20111128
  Receipt Date: 20111118
  Transmission Date: 20120403
  Serious: Yes (Other)
  Sender: FDA-Public Use
  Company Number: DE-ABBOTT-11P-062-0727804-00

PATIENT
  Sex: Female

DRUGS (13)
  1. PANTOPRAZOLE SODIUM [Concomitant]
     Indication: PRODUCT USED FOR UNKNOWN INDICATION
  2. CELEBREX [Concomitant]
     Indication: RHEUMATOID ARTHRITIS
  3. HUMIRA [Suspect]
     Indication: RHEUMATOID ARTHRITIS
     Route: 058
     Dates: start: 20110506
  4. PROPAFENONE HCL [Concomitant]
     Indication: PRODUCT USED FOR UNKNOWN INDICATION
  5. LEVOTHYROXINE SODIUM [Concomitant]
     Indication: PRODUCT USED FOR UNKNOWN INDICATION
  6. IRON [Concomitant]
     Indication: PRODUCT USED FOR UNKNOWN INDICATION
     Dosage: INFUSION
  7. TILIDIN [Concomitant]
     Indication: RHEUMATOID ARTHRITIS
  8. CORTISONE ACETATE [Concomitant]
     Route: 048
  9. ANALGETIC DRUG [Concomitant]
     Indication: RHEUMATOID ARTHRITIS
  10. KALINOR [Concomitant]
     Indication: PRODUCT USED FOR UNKNOWN INDICATION
     Route: 048
  11. CORTISONE ACETATE [Concomitant]
     Indication: RHEUMATOID ARTHRITIS
     Route: 050
  12. CERTOPARIN-NATRIUM [Concomitant]
     Indication: PRODUCT USED FOR UNKNOWN INDICATION
     Dosage: 8000IU
  13. ZINC [Concomitant]
     Indication: PRODUCT USED FOR UNKNOWN INDICATION
     Dosage: INFUSION

REACTIONS (12)
  - BRADYCARDIA [None]
  - WEIGHT DECREASED [None]
  - BLOOD TEST ABNORMAL [None]
  - JOINT SWELLING [None]
  - HAEMATOMA [None]
  - DIZZINESS [None]
  - PRURITUS GENERALISED [None]
  - DECREASED APPETITE [None]
  - LYMPHADENOPATHY [None]
  - ARRHYTHMIA [None]
  - DRUG INEFFECTIVE [None]
  - HYPERTENSION [None]
